FAERS Safety Report 11318185 (Version 6)
Quarter: 2016Q2

REPORT INFORMATION
  Report Type: Spontaneous
  Country: US (occurrence: US)
  Receive Date: 20150728
  Receipt Date: 20160504
  Transmission Date: 20160815
  Serious: Yes (Other)
  Sender: FDA-Public Use
  Company Number: US-EMD SERONO-237438K09USA

PATIENT
  Sex: Female

DRUGS (2)
  1. REBIF [Suspect]
     Active Substance: INTERFERON BETA-1A
     Indication: MULTIPLE SCLEROSIS
     Route: 058
     Dates: start: 20030120
  2. REBIF [Suspect]
     Active Substance: INTERFERON BETA-1A
     Route: 058
     Dates: start: 20041210

REACTIONS (19)
  - Anxiety [Not Recovered/Not Resolved]
  - Eye pain [Not Recovered/Not Resolved]
  - Osteoporosis [Not Recovered/Not Resolved]
  - Intraocular pressure increased [Recovering/Resolving]
  - Eye disorder [Recovering/Resolving]
  - Headache [Not Recovered/Not Resolved]
  - Dizziness [Recovering/Resolving]
  - Confusional state [Not Recovered/Not Resolved]
  - Abdominal pain upper [Recovered/Resolved]
  - Procedural dizziness [Not Recovered/Not Resolved]
  - Drug dose omission [Unknown]
  - Pituitary tumour benign [Recovering/Resolving]
  - Eye disorder [Unknown]
  - Nasopharyngitis [Unknown]
  - Visual impairment [Recovered/Resolved]
  - Dry eye [Not Recovered/Not Resolved]
  - Procedural headache [Unknown]
  - Fatigue [Recovered/Resolved]
  - Injection site pain [Unknown]

NARRATIVE: CASE EVENT DATE: 2005
